FAERS Safety Report 13476755 (Version 2)
Quarter: 2017Q3

REPORT INFORMATION
  Report Type: Spontaneous
  Country: GB (occurrence: None)
  Receive Date: 20170424
  Receipt Date: 20170703
  Transmission Date: 20171127
  Serious: Yes (Death)
  Sender: FDA-Public Use
  Company Number: GB2017K2618SPO

PATIENT
  Age: 35 Year
  Sex: Male
  Weight: 101 kg

DRUGS (6)
  1. AMLODIPINE WORLD (AMLODIPINE) UNKNOWN [Suspect]
     Active Substance: AMLODIPINE BESYLATE
     Indication: ESSENTIAL HYPERTENSION
     Route: 048
     Dates: end: 20170310
  2. EXVIERA (DASABUVIR SODIUM MONOHYDRATE) [Suspect]
     Active Substance: DASABUVIR
     Indication: HEPATITIS C
     Route: 048
     Dates: start: 20170224, end: 20170310
  3. RIBAVIRIN (RIBAVIRIN) [Suspect]
     Active Substance: RIBAVIRIN
     Indication: HEPATITIS C
     Route: 048
     Dates: start: 20170224, end: 20170310
  4. LANSOPRAZOLE GENERIC (LANSOPRAZOLE) UNKNOWN [Suspect]
     Active Substance: LANSOPRAZOLE
     Indication: PROPHYLAXIS
     Dosage: DOSING - GASTROINTESTINAL PROTECTION
     Route: 048
     Dates: end: 20170310
  5. THIAMINE (THIAMINE) [Suspect]
     Active Substance: THIAMINE
     Indication: VITAMIN SUPPLEMENTATION
     Route: 048
     Dates: end: 20170310
  6. VIEKIRAX (ABT-267 HYDRATE, ABT-450 ANHYDROUS, RITONAVIR) [Suspect]
     Active Substance: OMBITASVIR\PARITAPREVIR\RITONAVIR
     Indication: HEPATITIS C
     Route: 048
     Dates: start: 20170224, end: 20170310

REACTIONS (3)
  - Alcohol use [None]
  - Venous haemorrhage [None]
  - Gastric varices haemorrhage [None]

NARRATIVE: CASE EVENT DATE: 20170316
